FAERS Safety Report 7389552-X (Version None)
Quarter: 2011Q2

REPORT INFORMATION
  Report Type: 
  Country: None (occurrence: None)
  Receive Date: 20110401
  Receipt Date: 20110321
  Transmission Date: 20111010
  Serious: Yes (Other)
  Sender: FDA-Public Use
  Company Number: PHHY2011BR23931

PATIENT
  Sex: Male

DRUGS (2)
  1. DIOVAN AMLO FIX [Suspect]
     Indication: HYPERTENSION
     Dosage: 320/5 MG, 2 TABLETS A DAY
     Route: 048
     Dates: start: 20101101
  2. DIOVAN AMLO FIX [Suspect]
     Dosage: 320/5 MG, 1 TABLETS A DAY
     Route: 048
     Dates: start: 20110301

REACTIONS (1)
  - ARTERIAL OCCLUSIVE DISEASE [None]
